FAERS Safety Report 6492736-6 (Version None)
Quarter: 2009Q4

REPORT INFORMATION
  Report Type: 
  Country: None (occurrence: None)
  Receive Date: 20091211
  Receipt Date: 20091211
  Transmission Date: 20100525
  Serious: Yes (Life-Threatening, Hospitalization)
  Sender: FDA-Public Use
  Company Number: None

PATIENT
  Age: 72 Year
  Sex: Female
  Weight: 57.1532 kg

DRUGS (2)
  1. LIDOCAINE [Suspect]
  2. MARCAINE [Suspect]

REACTIONS (4)
  - CHOKING [None]
  - DYSPNOEA [None]
  - PHARYNGEAL OEDEMA [None]
  - REACTION TO PRESERVATIVES [None]
